FAERS Safety Report 25339085 (Version 1)
Quarter: 2025Q2

REPORT INFORMATION
  Report Type: Spontaneous
  Country: RU (occurrence: RU)
  Receive Date: 20250521
  Receipt Date: 20250521
  Transmission Date: 20250716
  Serious: Yes (Other)
  Sender: ALEXION PHARMACEUTICALS
  Company Number: RU-ASTRAZENECA-202505RUS013768RU

PATIENT
  Age: 10 Year

DRUGS (3)
  1. PULMICORT TURBUHALER [Suspect]
     Active Substance: BUDESONIDE
  2. CLEMASTINE FUMARATE [Concomitant]
     Active Substance: CLEMASTINE FUMARATE
     Dosage: 0.5 DOSAGE FORM, BID
     Route: 065
  3. OXYMETAZOLINE [Concomitant]
     Active Substance: OXYMETAZOLINE
     Route: 065

REACTIONS (4)
  - Drug ineffective [Unknown]
  - Chest discomfort [Unknown]
  - Nasal congestion [Unknown]
  - Cough [Unknown]
